FAERS Safety Report 25756188 (Version 1)
Quarter: 2025Q3

REPORT INFORMATION
  Report Type: Spontaneous
  Country: US (occurrence: None)
  Receive Date: 20250902
  Receipt Date: 20250902
  Transmission Date: 20251020
  Serious: Yes (Hospitalization)
  Sender: FDA-CTU
  Company Number: None

PATIENT
  Age: 58 Year
  Weight: 100.35 kg

DRUGS (12)
  1. JARDIANCE [Suspect]
     Active Substance: EMPAGLIFLOZIN
     Indication: Type 2 diabetes mellitus
     Dosage: OTHER QUANTITY : 1 TABLET(S);?FREQUENCY : DAILY;?
     Route: 048
  2. insulin IV [Concomitant]
  3. PANTOPRAZOLE SODIUM [Concomitant]
     Active Substance: PANTOPRAZOLE SODIUM
  4. ZOFRAN [Concomitant]
     Active Substance: ONDANSETRON HYDROCHLORIDE
  5. COMPAZINE [Concomitant]
     Active Substance: PROCHLORPERAZINE MALEATE
  6. gabapentin pantoprazole [Concomitant]
  7. lisinopriLhydrochlorothiazide [Concomitant]
  8. METFORMIN [Concomitant]
     Active Substance: METFORMIN HYDROCHLORIDE
  9. atorvastatin (when not hospitalized) [Concomitant]
  10. VITAMINS [Concomitant]
     Active Substance: VITAMINS
  11. COPPER [Concomitant]
     Active Substance: COPPER
  12. ZINC [Concomitant]
     Active Substance: ZINC

REACTIONS (4)
  - Euglycaemic diabetic ketoacidosis [None]
  - Full blood count abnormal [None]
  - Blood phosphorus abnormal [None]
  - Blood gases abnormal [None]

NARRATIVE: CASE EVENT DATE: 20250831
